FAERS Safety Report 20044636 (Version 2)
Quarter: 2022Q1

REPORT INFORMATION
  Report Type: Spontaneous
  Country: IE (occurrence: IE)
  Receive Date: 20211108
  Receipt Date: 20220103
  Transmission Date: 20220423
  Serious: Yes (Death, Hospitalization, Other)
  Sender: FDA-Public Use
  Company Number: IE-MYLANLABS-2021M1081298

PATIENT
  Age: 66 Year
  Sex: Female

DRUGS (1)
  1. CLOZARIL [Suspect]
     Active Substance: CLOZAPINE
     Indication: Schizophrenia
     Dosage: UNK
     Route: 048
     Dates: start: 20140122

REACTIONS (3)
  - Death [Fatal]
  - Hospitalisation [Unknown]
  - Metastatic neoplasm [Unknown]

NARRATIVE: CASE EVENT DATE: 20211203
